FAERS Safety Report 21382863 (Version 1)
Quarter: 2022Q3

REPORT INFORMATION
  Report Type: Spontaneous
  Country: US (occurrence: US)
  Receive Date: 20220927
  Receipt Date: 20220927
  Transmission Date: 20221026
  Serious: No
  Sender: FDA-Public Use
  Company Number: US-SA-SAC20220923001141

PATIENT
  Sex: Female

DRUGS (11)
  1. DUPIXENT [Suspect]
     Active Substance: DUPILUMAB
     Indication: Dermatitis atopic
     Dosage: 300 MG, QOW
     Dates: start: 20170804
  2. BIOTIN [Concomitant]
     Active Substance: BIOTIN
  3. CHOLECALCIFEROL [Concomitant]
     Active Substance: CHOLECALCIFEROL
  4. FOLIC ACID [Concomitant]
     Active Substance: FOLIC ACID
  5. LOSARTAN [Concomitant]
     Active Substance: LOSARTAN
  6. CALCIUM [Concomitant]
     Active Substance: CALCIUM
  7. SYNTHROID [Concomitant]
     Active Substance: LEVOTHYROXINE SODIUM
  8. TRAZODONE [Concomitant]
     Active Substance: TRAZODONE HYDROCHLORIDE
  9. ZINC [Concomitant]
     Active Substance: ZINC
  10. VITAMIN C [Concomitant]
     Active Substance: ASCORBIC ACID
  11. MAGNESIUM [Concomitant]
     Active Substance: MAGNESIUM
     Dosage: UNK

REACTIONS (1)
  - COVID-19 [Unknown]
